FAERS Safety Report 18119830 (Version 1)
Quarter: 2020Q3

REPORT INFORMATION
  Report Type: Spontaneous
  Country: US (occurrence: US)
  Receive Date: 20200806
  Receipt Date: 20200806
  Transmission Date: 20201103
  Serious: Yes (Hospitalization, Other)
  Sender: FDA-Public Use
  Company Number: US-AUROBINDO-AUR-APL-2020-037265

PATIENT
  Age: 4 Year
  Sex: Male

DRUGS (9)
  1. INTERFERON GAMMA NOS [Suspect]
     Active Substance: INTERFERON GAMMA
     Dosage: 50 GRAM PER SQUARE METRE (BODY SURFACE AREA THREE TIMES PER WEEK)
     Route: 058
  2. AMPHOTERICIN B, LIPOSOME [Suspect]
     Active Substance: AMPHOTERICIN B
     Indication: DISSEMINATED COCCIDIOIDOMYCOSIS
     Dosage: 7 MILLIGRAM/KILOGRAM (OF BODY WEIGHT)
     Route: 065
  3. DUPILUMAB [Suspect]
     Active Substance: DUPILUMAB
     Indication: DISSEMINATED COCCIDIOIDOMYCOSIS
     Dosage: 2 MILLIGRAM/KILOGRAM, EVERY WEEK
     Route: 065
  4. DUPILUMAB [Suspect]
     Active Substance: DUPILUMAB
     Dosage: 6 MILLIGRAM/KILOGRAM, EVERY WEEK
     Route: 065
  5. INTERFERON GAMMA NOS [Suspect]
     Active Substance: INTERFERON GAMMA
     Dosage: 200 GRAM PER SQUARE METRE 3 TIMES PER WEEK
     Route: 065
  6. SERTRALINE [Suspect]
     Active Substance: SERTRALINE HYDROCHLORIDE
     Indication: DISSEMINATED COCCIDIOIDOMYCOSIS
     Dosage: UNK
     Route: 065
  7. POSACONAZOLE [Suspect]
     Active Substance: POSACONAZOLE
     Indication: DISSEMINATED COCCIDIOIDOMYCOSIS
     Dosage: UNK
     Route: 065
  8. FLUCONAZOLE. [Suspect]
     Active Substance: FLUCONAZOLE
     Indication: DISSEMINATED COCCIDIOIDOMYCOSIS
     Dosage: UNK
     Route: 065
  9. INTERFERON GAMMA NOS [Suspect]
     Active Substance: INTERFERON GAMMA
     Indication: PRODUCT USED FOR UNKNOWN INDICATION
     Dosage: 50 GRAM PER SQUARE METRE (BODY SURFACE AREA THREE TIMES PER WEEK)
     Route: 058

REACTIONS (4)
  - Drug ineffective [Unknown]
  - Pyrexia [Recovered/Resolved]
  - Disease progression [Recovered/Resolved]
  - Off label use [Recovered/Resolved]
